FAERS Safety Report 8085168-0 (Version None)
Quarter: 2012Q1

REPORT INFORMATION
  Report Type: 
  Country: None (occurrence: None)
  Receive Date: 20120128
  Receipt Date: 20110320
  Transmission Date: 20120608
  Serious: No
  Sender: FDA-Public Use
  Company Number: US-ABBOTT-11P-163-0713219-00

PATIENT
  Age: 49 Year
  Sex: Female

DRUGS (6)
  1. VITAMIN D [Concomitant]
     Indication: OSTEOPOROSIS
  2. LIALDA [Concomitant]
     Indication: CROHN'S DISEASE
  3. EXTRA STRENGTH TYLENOL [Concomitant]
     Indication: OSTEOPOROSIS
  4. DAILY MULTIVITAMIN [Concomitant]
     Indication: VITAMIN SUPPLEMENTATION
  5. HUMIRA [Suspect]
     Indication: CROHN'S DISEASE
     Dates: start: 20091129
  6. FERROUS SULFATE TAB [Concomitant]
     Indication: MINERAL SUPPLEMENTATION
     Dosage: QOD

REACTIONS (4)
  - INJECTION SITE EROSION [None]
  - DEVICE MALFUNCTION [None]
  - INCORRECT DOSE ADMINISTERED [None]
  - INJECTION SITE HAEMORRHAGE [None]
